FAERS Safety Report 13036842 (Version 1)
Quarter: 2016Q4

REPORT INFORMATION
  Report Type: Report from Study
  Country: None (occurrence: US)
  Receive Date: 20161216
  Receipt Date: 20161216
  Transmission Date: 20170207
  Serious: Yes (Hospitalization)
  Sender: FDA-Public Use
  Company Number: US-ABBVIE-16K-163-1762306-00

PATIENT
  Sex: Female
  Weight: 122.58 kg

DRUGS (2)
  1. HUMIRA [Suspect]
     Active Substance: ADALIMUMAB
     Route: 058
     Dates: start: 201607
  2. HUMIRA [Suspect]
     Active Substance: ADALIMUMAB
     Indication: CROHN^S DISEASE
     Route: 058
     Dates: start: 201503, end: 201605

REACTIONS (9)
  - Musculoskeletal chest pain [Recovering/Resolving]
  - Uterine leiomyoma [Recovering/Resolving]
  - Diarrhoea [Recovering/Resolving]
  - Rectal discharge [Recovering/Resolving]
  - Incision site infection [Recovering/Resolving]
  - Colonic fistula [Not Recovered/Not Resolved]
  - Impaired healing [Unknown]
  - Ligament sprain [Recovering/Resolving]
  - Fall [Recovering/Resolving]
